FAERS Safety Report 5707081-3 (Version None)
Quarter: 2008Q2

REPORT INFORMATION
  Report Type: 
  Country: None (occurrence: None)
  Receive Date: 20080414
  Receipt Date: 20080414
  Transmission Date: 20081010
  Serious: No
  Sender: FDA-Public Use
  Company Number: None

PATIENT
  Sex: Female
  Weight: 117.9352 kg

DRUGS (1)
  1. CELLCEPT [Suspect]
     Indication: BRACHIAL PLEXUS INJURY
     Dosage: 1000 MG BID PO
     Route: 048
     Dates: start: 20071123, end: 20080413

REACTIONS (5)
  - DRUG INTERACTION [None]
  - FLUSHING [None]
  - ORAL DISORDER [None]
  - THINKING ABNORMAL [None]
  - VISION BLURRED [None]
